FAERS Safety Report 4588690-4 (Version None)
Quarter: 2005Q1

REPORT INFORMATION
  Report Type: 
  Country: None (occurrence: None)
  Receive Date: 20050214
  Receipt Date: 20050214
  Transmission Date: 20050727
  Serious: Yes (Hospitalization, Other)
  Sender: FDA-Public Use
  Company Number: None

PATIENT
  Age: 57 Year
  Sex: Male
  Weight: 129 kg

DRUGS (3)
  1. PROMETHAZINE [Suspect]
     Indication: GASTROINTESTINAL DISORDER
     Dosage: PO
     Route: 048
  2. IMODIUM [Suspect]
     Indication: GASTROINTESTINAL DISORDER
     Dosage: PO
     Route: 048
  3. PHENERGAN [Concomitant]

REACTIONS (7)
  - ATRIAL FIBRILLATION [None]
  - AZOTAEMIA [None]
  - OBSTRUCTIVE UROPATHY [None]
  - PROSTATIC OBSTRUCTION [None]
  - RENAL FAILURE ACUTE [None]
  - URINARY RETENTION [None]
  - URINARY TRACT INFECTION [None]
